FAERS Safety Report 7290316-6 (Version None)
Quarter: 2011Q1

REPORT INFORMATION
  Report Type: 
  Country: None (occurrence: None)
  Receive Date: 20110214
  Receipt Date: 20110203
  Transmission Date: 20110831
  Serious: Yes (Hospitalization, Other)
  Sender: FDA-Public Use
  Company Number: PHHY2011BR08683

PATIENT
  Age: 78 Year
  Sex: Male

DRUGS (2)
  1. CYMBALTA [Concomitant]
     Dosage: UNK
  2. EXELON [Suspect]
     Indication: PARKINSON'S DISEASE
     Dosage: 1 DF, QD
     Route: 062

REACTIONS (2)
  - URINARY TRACT INFECTION [None]
  - NEPHROLITHIASIS [None]
